FAERS Safety Report 22014924 (Version 1)
Quarter: 2023Q1

REPORT INFORMATION
  Report Type: Spontaneous
  Country: FR (occurrence: FR)
  Receive Date: 20230221
  Receipt Date: 20230221
  Transmission Date: 20230418
  Serious: Yes (Hospitalization)
  Sender: FDA-Public Use
  Company Number: None

PATIENT
  Age: 75 Year
  Sex: Female
  Weight: 57 kg

DRUGS (4)
  1. GEMCITABINE [Suspect]
     Active Substance: GEMCITABINE
     Indication: Cutaneous T-cell lymphoma
     Dosage: STRENGTH:200 MG, 1650 MG EVERY 21 DAYS
     Dates: start: 20221221, end: 20230112
  2. DOXORUBICIN HYDROCHLORIDE [Suspect]
     Active Substance: DOXORUBICIN HYDROCHLORIDE
     Indication: Cutaneous T-cell lymphoma
     Dosage: STRENGTH:2 MG/ML,25 MG EVERY 21 DAYS
     Dates: start: 20221221, end: 20230112
  3. NAVELBINE [Suspect]
     Active Substance: VINORELBINE TARTRATE
     Indication: Cutaneous T-cell lymphoma
     Dosage: 33 MG EVERY 21 DAYS,STRENGTH:50 MG/5 ML  IN VIAL
     Dates: start: 20221221, end: 20230112
  4. ADCETRIS [Concomitant]
     Active Substance: BRENTUXIMAB VEDOTIN
     Indication: Cutaneous T-cell lymphoma
     Dosage: STRENGTH:50 MG,102.50 MG EVERY 21 DAYS
     Dates: start: 20221221, end: 20230112

REACTIONS (2)
  - Hepatic cytolysis [Recovering/Resolving]
  - Cholestasis [Recovering/Resolving]

NARRATIVE: CASE EVENT DATE: 20230117
